FAERS Safety Report 15837873 (Version 1)
Quarter: 2019Q1

REPORT INFORMATION
  Report Type: Spontaneous
  Country: US (occurrence: US)
  Receive Date: 20190117
  Receipt Date: 20190117
  Transmission Date: 20190417
  Serious: Yes (Hospitalization)
  Sender: FDA-Public Use
  Company Number: None

PATIENT
  Sex: Female

DRUGS (4)
  1. BOTOX [Suspect]
     Active Substance: ONABOTULINUMTOXINA
     Indication: MIGRAINE
     Dosage: ?          OTHER FREQUENCY:EVERY 90 DAYS;?
     Route: 030
     Dates: start: 20170126
  2. NEXIUM, SIRT ROD/GLA MIS, PROPRANOLOL, PROZAC, TEGRETOL [Concomitant]
  3. TOPAMAX, LEVOCETIRIZI, NEURONTIN, PRILOSEC, SPIRIVA, IBURPROFEN [Concomitant]
  4. CLOVETASOL, PROAIR, WELLBUTRIN, SYNVISC, ADVAIR, ENBREL [Concomitant]

REACTIONS (1)
  - Gastrointestinal surgery [None]
